FAERS Safety Report 13388820 (Version 1)
Quarter: 2017Q1

REPORT INFORMATION
  Report Type: Report from Study
  Country: None (occurrence: US)
  Receive Date: 20170330
  Receipt Date: 20170330
  Transmission Date: 20170429
  Serious: Yes (Hospitalization)
  Sender: FDA-Public Use
  Company Number: US-ABBVIE-17K-163-1923802-00

PATIENT
  Age: 61 Year
  Sex: Female

DRUGS (3)
  1. TETRACYCLINE [Concomitant]
     Active Substance: TETRACYCLINE
     Indication: HIDRADENITIS
  2. HUMIRA [Suspect]
     Active Substance: ADALIMUMAB
     Route: 058
     Dates: start: 201702
  3. HUMIRA [Suspect]
     Active Substance: ADALIMUMAB
     Indication: CROHN^S DISEASE
     Route: 058
     Dates: start: 2015, end: 201612

REACTIONS (11)
  - Injection site urticaria [Recovered/Resolved]
  - Fall [Recovered/Resolved]
  - Joint injury [Recovered/Resolved]
  - Injection site pain [Not Recovered/Not Resolved]
  - Injection site pain [Recovered/Resolved]
  - Incorrect dose administered [Unknown]
  - Device issue [Unknown]
  - Injection site pruritus [Recovered/Resolved]
  - Pyrexia [Recovered/Resolved]
  - Injection site vesicles [Not Recovered/Not Resolved]
  - Ligament rupture [Recovered/Resolved]

NARRATIVE: CASE EVENT DATE: 2015
